FAERS Safety Report 6132448-1 (Version None)
Quarter: 2009Q1

REPORT INFORMATION
  Report Type: 
  Country: None (occurrence: None)
  Receive Date: 20090325
  Receipt Date: 20090319
  Transmission Date: 20090719
  Serious: No
  Sender: FDA-Public Use
  Company Number: US-B.I. PHARMACEUTICALS,INC./RIDGEFIELD-2009-BP-02653BP

PATIENT
  Age: 66 Year
  Sex: Female

DRUGS (7)
  1. SPIRIVA [Suspect]
     Indication: CHRONIC OBSTRUCTIVE PULMONARY DISEASE
     Dosage: 18MCG
     Route: 055
     Dates: start: 20090202
  2. SPIRIVA [Suspect]
     Indication: EMPHYSEMA
  3. EVISTA [Concomitant]
     Indication: OSTEOPENIA
  4. OMEPRAZOLE [Concomitant]
     Indication: GASTROOESOPHAGEAL REFLUX DISEASE
  5. EYE DROPS [Concomitant]
     Indication: GLAUCOMA
  6. NEVALNAC [Concomitant]
     Route: 047
  7. ZYMAR [Concomitant]
     Route: 047

REACTIONS (1)
  - LIP EXFOLIATION [None]
